FAERS Safety Report 6209700-4 (Version None)
Quarter: 2009Q2

REPORT INFORMATION
  Report Type: 
  Country: None (occurrence: None)
  Receive Date: 20090529
  Receipt Date: 20090529
  Transmission Date: 20091009
  Serious: Yes (Other)
  Sender: FDA-Public Use
  Company Number: None

PATIENT
  Age: 50 Year
  Sex: Female
  Weight: 53.978 kg

DRUGS (2)
  1. BOTOX [Suspect]
     Indication: NECK PAIN
     Dates: start: 20090326
  2. BOTOX [Suspect]
     Indication: TORTICOLLIS
     Dates: start: 20090326

REACTIONS (7)
  - ABDOMINAL DISCOMFORT [None]
  - DYSPNOEA [None]
  - HEADACHE [None]
  - MALAISE [None]
  - PAIN [None]
  - PYREXIA [None]
  - RASH [None]
